FAERS Safety Report 21182966 (Version 1)
Quarter: 2022Q3

REPORT INFORMATION
  Report Type: Spontaneous
  Country: DK (occurrence: DK)
  Receive Date: 20220808
  Receipt Date: 20220808
  Transmission Date: 20221027
  Serious: Yes (Other)
  Sender: FDA-Public Use
  Company Number: DK-SUN PHARMACEUTICAL INDUSTRIES LTD-2022R1-345174

PATIENT
  Age: 57 Year
  Sex: Female

DRUGS (1)
  1. PRAMIPEXOLE [Suspect]
     Active Substance: PRAMIPEXOLE
     Indication: Restless legs syndrome
     Dosage: 0.52 MILLIGRAM, DAILY
     Route: 065
     Dates: start: 2007

REACTIONS (3)
  - Gambling disorder [Unknown]
  - Depression [Unknown]
  - Suicidal behaviour [Unknown]
